FAERS Safety Report 5078877-9 (Version None)
Quarter: 2006Q3

REPORT INFORMATION
  Report Type: 
  Country: None (occurrence: None)
  Receive Date: 20060809
  Receipt Date: 20060809
  Transmission Date: 20061208
  Serious: Yes (Hospitalization)
  Sender: FDA-Public Use
  Company Number: None

PATIENT
  Sex: Female
  Weight: 69.3 kg

DRUGS (6)
  1. MYFORTIC [Suspect]
     Indication: PROPHYLAXIS AGAINST TRANSPLANT REJECTION
     Dosage: 1080 PO BID
     Route: 048
     Dates: start: 20060725
  2. CORTICOSTEROIDS [Concomitant]
  3. THYMOGLOBULIN [Concomitant]
  4. TACROLIMUS [Concomitant]
  5. CLONIDINE [Concomitant]
  6. ATENOLOL [Concomitant]

REACTIONS (3)
  - POST PROCEDURAL NAUSEA [None]
  - POST PROCEDURAL VOMITING [None]
  - PROCEDURAL HYPERTENSION [None]
